FAERS Safety Report 5977268-3 (Version None)
Quarter: 2008Q4

REPORT INFORMATION
  Report Type: 
  Country: None (occurrence: None)
  Receive Date: 20081201
  Receipt Date: 20081201
  Transmission Date: 20090506
  Serious: Yes (Hospitalization)
  Sender: FDA-Public Use
  Company Number: None

PATIENT
  Sex: Male
  Weight: 18.6 kg

DRUGS (1)
  1. 131 I-MIBG NUCLEAR DIAGNOSTIC PRODUCTS [Suspect]
     Indication: NEUROBLASTOMA
     Dosage: 342MCI (18MCI/KG) ONCE IV
     Route: 042
     Dates: start: 20080925

REACTIONS (4)
  - BLOOD CULTURE POSITIVE [None]
  - NEUTROPENIA [None]
  - RASH [None]
  - STREPTOCOCCAL INFECTION [None]
